FAERS Safety Report 5156109-0 (Version None)
Quarter: 2006Q4

REPORT INFORMATION
  Report Type: 
  Country: None (occurrence: None)
  Receive Date: 20061122
  Receipt Date: 20061003
  Transmission Date: 20070319
  Serious: Yes (Other)
  Sender: FDA-Public Use
  Company Number: PHBS2006JP15581

PATIENT
  Age: 80 Year
  Sex: Female

DRUGS (1)
  1. VOLTAREN [Suspect]
     Indication: MYALGIA
     Dosage: UNK, UNK
     Route: 061
     Dates: start: 20060905, end: 20060908

REACTIONS (2)
  - BRADYCARDIA [None]
  - HEART RATE DECREASED [None]
